FAERS Safety Report 20325406 (Version 1)
Quarter: 2022Q1

REPORT INFORMATION
  Report Type: Spontaneous
  Country: US (occurrence: US)
  Receive Date: 20220112
  Receipt Date: 20220112
  Transmission Date: 20220423
  Serious: Yes (Hospitalization)
  Sender: FDA-Public Use
  Company Number: US-CHIESI-2022CHF00034

PATIENT
  Age: 19 Year
  Sex: Male

DRUGS (5)
  1. BETHKIS [Suspect]
     Active Substance: TOBRAMYCIN
     Indication: Cystic fibrosis
     Dosage: 1 DOSAGE FORM, BID
     Route: 055
     Dates: start: 202012
  2. BETHKIS [Suspect]
     Active Substance: TOBRAMYCIN
     Indication: Pneumonia pseudomonal
  3. BETHKIS [Suspect]
     Active Substance: TOBRAMYCIN
     Indication: Bronchiectasis
  4. BETHKIS [Suspect]
     Active Substance: TOBRAMYCIN
     Indication: Pneumonia pseudomonal
  5. BETHKIS [Suspect]
     Active Substance: TOBRAMYCIN
     Indication: Off label use

REACTIONS (2)
  - Ill-defined disorder [Unknown]
  - Off label use [Not Recovered/Not Resolved]

NARRATIVE: CASE EVENT DATE: 20201201
